FAERS Safety Report 10029238 (Version 2)
Quarter: 2014Q2

REPORT INFORMATION
  Report Type: Report from Study
  Country: DE (occurrence: DE)
  Receive Date: 20140321
  Receipt Date: 20140423
  Transmission Date: 20141212
  Serious: Yes (Other)
  Sender: FDA-Public Use
  Company Number: PHHY2014DE031130

PATIENT
  Sex: Male

DRUGS (9)
  1. HYDROXYCARBAMIDE [Concomitant]
     Indication: CHRONIC MYELOID LEUKAEMIA
     Dosage: 1000 MG, PER DAY
     Dates: start: 20120326, end: 20120329
  2. ALLOPURINOL [Concomitant]
     Indication: CELL DEATH
     Dosage: 600 MG, PER DAY
     Dates: start: 20120323
  3. KALINOR [Concomitant]
     Indication: HYPOKALAEMIA
     Dosage: 1 DF, PER DAY
     Dates: start: 20120413
  4. AMN107 [Suspect]
     Indication: CHRONIC MYELOID LEUKAEMIA
     Dosage: 600 MG, PER DAY
     Route: 048
     Dates: start: 20120330
  5. ASS [Concomitant]
     Indication: PROPHYLAXIS
     Dosage: 100 MG, PER DAY
  6. SIMVASTATIN [Concomitant]
     Indication: HYPERLIPIDAEMIA
     Dosage: 40 MG, PER DAY
  7. ISOSORBID MONONITRATE [Concomitant]
     Indication: MYOCARDIAL INFARCTION
     Dosage: 40 MG, PER DAY
  8. METOPROLOL [Concomitant]
     Indication: CORONARY ARTERY DISEASE
     Dosage: 50 MG, PER DAY
  9. FUROSEMIDE [Concomitant]
     Indication: HYPERTENSION
     Dosage: 100 MG, PER DAY

REACTIONS (1)
  - Genital abscess [Recovered/Resolved]
